FAERS Safety Report 22282667 (Version 1)
Quarter: 2023Q2

REPORT INFORMATION
  Report Type: Spontaneous
  Country: US (occurrence: US)
  Receive Date: 20230504
  Receipt Date: 20230504
  Transmission Date: 20230722
  Serious: No
  Sender: FDA-Public Use
  Company Number: US-TEVA-2023-US-2878579

PATIENT
  Age: 19 Year
  Sex: Female

DRUGS (2)
  1. METOCLOPRAMIDE [Suspect]
     Active Substance: METOCLOPRAMIDE
     Indication: Nausea
     Dosage: 30 MILLIGRAM DAILY; 30 MINUTES TO ONE HOUR BEFORE TAKING THE SPRINTEC
     Route: 065
     Dates: start: 20230405
  2. SPRINTEC [Suspect]
     Active Substance: ETHINYL ESTRADIOL\NORGESTIMATE
     Indication: Anaemia
     Dosage: 0.25-0.035 MG-MG, THREE SPRINTEC TABLETS PER DAY FOR ONE WEEK, THEN DECREASE TO TWO TABLETS PER DAY
     Route: 065
     Dates: start: 20230405

REACTIONS (4)
  - Gluten sensitivity [Unknown]
  - Diarrhoea [Unknown]
  - Vomiting [Unknown]
  - Product prescribing issue [Unknown]

NARRATIVE: CASE EVENT DATE: 20230401
